FAERS Safety Report 23267075 (Version 1)
Quarter: 2023Q4

REPORT INFORMATION
  Report Type: Report from Study
  Country: BR (occurrence: BR)
  Receive Date: 20231206
  Receipt Date: 20231206
  Transmission Date: 20240110
  Serious: Yes (Other)
  Sender: FDA-Public Use
  Company Number: BR-MYLANLABS-2023M1127766

PATIENT
  Sex: Female
  Weight: 58 kg

DRUGS (2)
  1. LATANOPROST\TIMOLOL MALEATE [Suspect]
     Active Substance: LATANOPROST\TIMOLOL MALEATE
     Indication: Glaucoma
     Dosage: 1 GTT DROPS, QD (1 DROP IN EACH EYE AT NIGHT AT 10:00 PM)
     Route: 047
  2. XALATAN [Suspect]
     Active Substance: LATANOPROST
     Indication: Glaucoma
     Dosage: 1 GTT DROPS
     Route: 047
     Dates: start: 2003

REACTIONS (5)
  - Corneal degeneration [Not Recovered/Not Resolved]
  - Myopia [Not Recovered/Not Resolved]
  - Cataract [Unknown]
  - Eye discharge [Not Recovered/Not Resolved]
  - Dry eye [Not Recovered/Not Resolved]

NARRATIVE: CASE EVENT DATE: 20210101
